FAERS Safety Report 21062630 (Version 2)
Quarter: 2022Q3

REPORT INFORMATION
  Report Type: Spontaneous
  Country: JP (occurrence: JP)
  Receive Date: 20220711
  Receipt Date: 20220804
  Transmission Date: 20221027
  Serious: Yes (Life-Threatening, Other)
  Sender: FDA-Public Use
  Company Number: JP-GEHPL-2022JSU004557AA

PATIENT
  Age: 71 Year

DRUGS (3)
  1. OMNIPAQUE [Suspect]
     Active Substance: IOHEXOL
     Indication: Angiogram
     Dosage: 5 ML, SINGLE
     Route: 048
     Dates: start: 20220629, end: 20220629
  2. OMNIPAQUE [Suspect]
     Active Substance: IOHEXOL
     Indication: Oesophagram
  3. OMNIPAQUE [Suspect]
     Active Substance: IOHEXOL
     Indication: Product used for unknown indication

REACTIONS (2)
  - Pneumonia aspiration [Recovered/Resolved]
  - Accidental exposure to product [Recovered/Resolved]

NARRATIVE: CASE EVENT DATE: 20220629
